FAERS Safety Report 6014993-2 (Version None)
Quarter: 2008Q4

REPORT INFORMATION
  Report Type: 
  Country: None (occurrence: None)
  Receive Date: 20081219
  Receipt Date: 20081212
  Transmission Date: 20090506
  Serious: Yes (Death)
  Sender: FDA-Public Use
  Company Number: US-GENENTECH-274090

PATIENT
  Age: 65 Year
  Sex: Female

DRUGS (2)
  1. AVASTIN [Suspect]
     Indication: OVARIAN CANCER METASTATIC
     Dosage: UNK
  2. CYCLOPHOSPHAMIDE [Concomitant]
     Indication: CHEMOTHERAPY

REACTIONS (1)
  - PULMONARY HYPERTENSION [None]
